FAERS Safety Report 7555054-0 (Version None)
Quarter: 2011Q2

REPORT INFORMATION
  Report Type: 
  Country: None (occurrence: None)
  Receive Date: 20110617
  Receipt Date: 20110609
  Transmission Date: 20111010
  Serious: Yes (Other)
  Sender: FDA-Public Use
  Company Number: PHHY2011JP50136

PATIENT
  Age: 86 Year
  Sex: Male

DRUGS (1)
  1. RIFAMPICIN [Suspect]
     Dosage: UNK
     Route: 048

REACTIONS (1)
  - INTERSTITIAL LUNG DISEASE [None]
